FAERS Safety Report 10463454 (Version 3)
Quarter: 2014Q4

REPORT INFORMATION
  Report Type: Spontaneous
  Country: US (occurrence: None)
  Receive Date: 20140917
  Receipt Date: 20141028
  Transmission Date: 20150528
  Serious: Yes (Other)
  Sender: FDA-Public Use
  Company Number: 2014SA124436

PATIENT
  Age: 63 Year
  Sex: Female

DRUGS (2)
  1. ASPARTAME [Concomitant]
     Active Substance: ASPARTAME
  2. KAOPECTATE [Suspect]
     Active Substance: BISMUTH SUBSALICYLATE

REACTIONS (2)
  - Colitis ulcerative [None]
  - Colon cancer [None]
